FAERS Safety Report 6164042-0 (Version None)
Quarter: 2009Q2

REPORT INFORMATION
  Report Type: 
  Country: None (occurrence: None)
  Receive Date: 20090422
  Receipt Date: 20090415
  Transmission Date: 20091009
  Serious: Yes (Hospitalization)
  Sender: FDA-Public Use
  Company Number: US-AVENTIS-200911648US

PATIENT
  Sex: Female
  Weight: 66.68 kg

DRUGS (2)
  1. LANTUS [Suspect]
     Route: 058
     Dates: start: 20060101
  2. OPTICLIK (INSULIN INJECTION PEN) [Suspect]
     Dates: start: 20070101

REACTIONS (7)
  - CEREBROVASCULAR ACCIDENT [None]
  - DYSGRAPHIA [None]
  - DYSPHAGIA [None]
  - GAIT DISTURBANCE [None]
  - HEMIPARESIS [None]
  - MEDICATION ERROR [None]
  - SPEECH DISORDER [None]
